FAERS Safety Report 21892189 (Version 1)
Quarter: 2023Q1

REPORT INFORMATION
  Report Type: Spontaneous
  Country: US (occurrence: None)
  Receive Date: 20230120
  Receipt Date: 20230120
  Transmission Date: 20230418
  Serious: No
  Sender: FDA-Public Use
  Company Number: None

PATIENT
  Sex: 0

DRUGS (1)
  1. TRASTUZUMAB [Suspect]
     Active Substance: TRASTUZUMAB

REACTIONS (3)
  - Feeling cold [None]
  - Therapy interrupted [None]
  - Infusion related reaction [None]

NARRATIVE: CASE EVENT DATE: 20221213
